FAERS Safety Report 5059343-3 (Version None)
Quarter: 2006Q3

REPORT INFORMATION
  Report Type: 
  Country: None (occurrence: None)
  Receive Date: 20060724
  Receipt Date: 20060712
  Transmission Date: 20061208
  Serious: Yes (Other)
  Sender: FDA-Public Use
  Company Number: PHFR2006GB02221

PATIENT
  Sex: Female

DRUGS (1)
  1. FEMARA [Suspect]
     Indication: ENDOMETRIAL CANCER
     Dosage: 2.5MG/DAY

REACTIONS (2)
  - HYPERPROTEINAEMIA [None]
  - PROTEIN TOTAL INCREASED [None]
